FAERS Safety Report 4416247-4 (Version None)
Quarter: 2004Q3

REPORT INFORMATION
  Report Type: 
  Country: None (occurrence: None)
  Receive Date: 20040805
  Receipt Date: 20040716
  Transmission Date: 20050211
  Serious: Yes (Hospitalization)
  Sender: FDA-Public Use
  Company Number: 200412370JP

PATIENT
  Age: 72 Year
  Sex: Male

DRUGS (3)
  1. KETEK [Suspect]
     Indication: PNEUMONIA
     Route: 048
     Dates: start: 20040628, end: 20040704
  2. MEIACT [Suspect]
     Indication: PNEUMONIA
     Route: 048
     Dates: start: 20040624, end: 20040627
  3. CLARICID [Suspect]
     Indication: PNEUMONIA
     Route: 048
     Dates: start: 20040705, end: 20040711

REACTIONS (3)
  - CONDITION AGGRAVATED [None]
  - CRYPTOGENIC ORGANIZING PNEUMONIA [None]
  - PNEUMONIA [None]
